FAERS Safety Report 8916480 (Version 1)
Quarter: 2012Q4

REPORT INFORMATION
  Report Type: 
  Country: CH (occurrence: CH)
  Receive Date: 20121120
  Receipt Date: 20121120
  Transmission Date: 20130627
  Serious: Yes (Other)
  Sender: FDA-Public Use
  Company Number: CH-ROCHE-345229

PATIENT
  Age: 79 Year
  Sex: Female

DRUGS (4)
  1. ROCEPHIN [Suspect]
     Indication: LYME DISEASE
     Route: 042
     Dates: start: 20030724, end: 20030808
  2. MORPHINE HYDROCHLORIDE [Concomitant]
     Indication: CHEST PAIN
     Route: 042
  3. ANTRA [Concomitant]
     Indication: GASTROINTESTINAL DISORDER
     Route: 042
  4. FRAGMIN [Concomitant]
     Indication: PROPHYLAXIS
     Dosage: Daily Dose=2500 UNIT
     Route: 058

REACTIONS (1)
  - Hepatocellular injury [Recovered/Resolved]
